FAERS Safety Report 25806252 (Version 1)
Quarter: 2025Q3

REPORT INFORMATION
  Report Type: Spontaneous
  Country: US (occurrence: US)
  Receive Date: 20250916
  Receipt Date: 20250916
  Transmission Date: 20251020
  Serious: No
  Sender: ELI LILLY AND COMPANY
  Company Number: US-ELI_LILLY_AND_COMPANY-US202509010817

PATIENT

DRUGS (1)
  1. MIRIKIZUMAB [Suspect]
     Active Substance: MIRIKIZUMAB
     Indication: Crohn^s disease
     Route: 065
     Dates: start: 20250909

REACTIONS (1)
  - Injection site pain [Unknown]

NARRATIVE: CASE EVENT DATE: 20250909
